FAERS Safety Report 6831967-X (Version None)
Quarter: 2010Q3

REPORT INFORMATION
  Report Type: 
  Country: None (occurrence: None)
  Receive Date: 20100712
  Receipt Date: 20100703
  Transmission Date: 20110219
  Serious: Yes (Other)
  Sender: FDA-Public Use
  Company Number: BR-ROCHE-708636

PATIENT
  Age: 30 Year
  Sex: Female
  Weight: 61 kg

DRUGS (1)
  1. ROACUTAN [Suspect]
     Indication: ACNE
     Dosage: FREQUENCY: 1 CAPSULE PER DAY, 2 CAPSULES THE OTHER DAY.
     Route: 048
     Dates: start: 20100301

REACTIONS (3)
  - FEELING OF DESPAIR [None]
  - HAEMORRHOIDS [None]
  - THERAPEUTIC RESPONSE DECREASED [None]
